FAERS Safety Report 4268704-1 (Version None)
Quarter: 2004Q1

REPORT INFORMATION
  Report Type: 
  Country: None (occurrence: None)
  Receive Date: 20040108
  Receipt Date: 20031231
  Transmission Date: 20041129
  Serious: Yes (Hospitalization)
  Sender: FDA-Public Use
  Company Number: US-JNJFOC-20030902526

PATIENT
  Age: 49 Year
  Sex: Female
  Weight: 69.4003 kg

DRUGS (4)
  1. DURAGESIC [Suspect]
     Indication: CANCER PAIN
     Dosage: SEE IMAGE
     Route: 062
     Dates: end: 20030801
  2. DURAGESIC [Suspect]
     Indication: CANCER PAIN
     Dosage: SEE IMAGE
     Route: 062
     Dates: start: 20030801
  3. DURAGESIC [Suspect]
  4. CHEMOTHERAPY (ANTINEOPLASTIC AGENTS) [Concomitant]

REACTIONS (2)
  - FEBRILE NEUTROPENIA [None]
  - INFECTION [None]
